FAERS Safety Report 9672663 (Version 1)
Quarter: 2013Q4

REPORT INFORMATION
  Report Type: Spontaneous
  Country: US (occurrence: US)
  Receive Date: 20131106
  Receipt Date: 20131106
  Transmission Date: 20140711
  Serious: No
  Sender: FDA-Public Use
  Company Number: US-AMGEN-USASP2013067255

PATIENT
  Age: 62 Year
  Sex: Female
  Weight: 106.58 kg

DRUGS (19)
  1. ENBREL [Suspect]
     Indication: PRODUCT USED FOR UNKNOWN INDICATION
     Dosage: 50 MG, QWK
     Route: 058
  2. PREMPRO [Concomitant]
     Dosage: 0.45-1.5, UNK
  3. VESICARE [Concomitant]
     Dosage: 5 MG, UNK
  4. PANTOPRAZOLE [Concomitant]
     Dosage: 40 MG, UNK
  5. FLONASE                            /00908302/ [Concomitant]
     Dosage: 0.05 %, UNK
  6. CHOLEST-OFF [Concomitant]
     Dosage: UNK
  7. PLAQUENIL                          /00072602/ [Concomitant]
     Dosage: 200 MG, UNK
  8. LEVOTHYROXIN [Concomitant]
     Dosage: 88 MUG, UNK
  9. BUSPAR [Concomitant]
     Dosage: 10 MG, UNK
  10. ATENOLOL [Concomitant]
     Dosage: 25 MG, UNK
  11. ASPIRIN [Concomitant]
     Dosage: 81 MG, UNK
  12. FOLIC ACID [Concomitant]
     Dosage: UNK
  13. PREDNISONE [Concomitant]
     Dosage: 1 MG, UNK
  14. HYDROCHLOROTHIAZIDE W/TRIAMTERENE [Concomitant]
     Dosage: 25-50 MG, UNK
  15. CRANBERRY                          /01512301/ [Concomitant]
     Dosage: UNK
  16. CALCIUM [Concomitant]
     Dosage: 500, UNK
  17. VITAMIN E                          /00110501/ [Concomitant]
     Dosage: 1000 UNIT, UNK
  18. FISH OIL [Concomitant]
     Dosage: UNK
  19. MOVE FREE [Concomitant]
     Dosage: 500-400, UNK

REACTIONS (1)
  - Injection site induration [Unknown]
